FAERS Safety Report 8580672 (Version 2)
Quarter: 2014Q1

REPORT INFORMATION
  Report Type: Spontaneous
  Country: US (occurrence: None)
  Receive Date: 20120323
  Receipt Date: 20140306
  Transmission Date: 20141002
  Serious: Yes (Other)
  Sender: FDA-Public Use
  Company Number: 163-21880-11110445

PATIENT
  Age: 65 Year
  Sex: Male
  Weight: 97.5 kg

DRUGS (17)
  1. REVLIMID [Suspect]
     Indication: PLASMA CELL MYELOMA
     Dosage: 25 MG, 1 IN 1 D, PO
     Route: 048
     Dates: start: 201102
  2. AMLODIPINE [Concomitant]
  3. CALCIUM D (OS-CAL) [Concomitant]
  4. CHONDROTIN (CHONDROITIN) [Concomitant]
  5. DEXAMETHASONE (DEXAMETHASONE) [Concomitant]
  6. MULTI 50+ (MULTIVITAMINS WITH MINERALS) [Concomitant]
  7. RANITIDINE HYDROCHLORIDE [Concomitant]
  8. TRAZODONE HYDROCHLORIDE [Concomitant]
  9. ZOMETA (ZOLEDRONIC ACID) [Concomitant]
  10. CYMBALTA (DULOXETINE HYDROCHLORIDE) [Concomitant]
  11. LIPITOR (ATORVASTATIN) [Concomitant]
  12. ASPIRIN (ACETYLSALICYLIC ACID) [Concomitant]
  13. BRILINTA (TICAGRELOR) [Concomitant]
  14. METOPROLOL TARTRATE [Concomitant]
  15. BENICAR (OLMESARTAN MEDOXOMIL) [Concomitant]
  16. FLAXSEED OIL (LINSEED OIL) [Concomitant]
  17. MULTIVITAMINS [Concomitant]

REACTIONS (4)
  - Thrombosis [None]
  - Drug dose omission [None]
  - Thrombosis [None]
  - Deep vein thrombosis [None]
